FAERS Safety Report 23932844 (Version 1)
Quarter: 2024Q2

REPORT INFORMATION
  Report Type: Spontaneous
  Country: US (occurrence: US)
  Receive Date: 20240603
  Receipt Date: 20240603
  Transmission Date: 20240716
  Serious: No
  Sender: FDA-Public Use
  Company Number: US-ELI_LILLY_AND_COMPANY-US202405018774

PATIENT
  Age: 76 Year

DRUGS (1)
  1. HUMALOG [Suspect]
     Active Substance: INSULIN LISPRO
     Indication: Product used for unknown indication
     Dosage: 100 U, PRN (MAXIMUM DAILY DOSE THREE TIME PER DAY AS PER SLIDING SCALE)
     Route: 058

REACTIONS (1)
  - Hypoacusis [Unknown]
